FAERS Safety Report 8861213 (Version 1)
Quarter: 2012Q4

REPORT INFORMATION
  Report Type: 
  Country: FR (occurrence: FR)
  Receive Date: 20121026
  Receipt Date: 20121026
  Transmission Date: 20130627
  Serious: Yes (Death)
  Sender: FDA-Public Use
  Company Number: FR-009507513-1210FRA011519

PATIENT
  Age: 34 Year
  Sex: Male

DRUGS (8)
  1. EMEND [Suspect]
     Indication: PREMEDICATION
     Dosage: 125 mg, qd
     Route: 048
     Dates: start: 20110908, end: 20110908
  2. EMEND [Suspect]
     Dosage: 80 mg, qd
     Route: 048
     Dates: start: 20110909, end: 20110910
  3. YONDELIS [Suspect]
     Indication: SARCOMA
     Dosage: 2.75 mg, UNK
     Route: 042
     Dates: start: 20110908, end: 20110908
  4. METHYLPREDNISOLONE [Suspect]
     Indication: PREMEDICATION
     Dosage: 60 mg, qd
     Route: 042
     Dates: start: 20110908, end: 20110908
  5. ZOPHREN (ONDANSETRON) [Suspect]
     Indication: PREMEDICATION
     Dosage: 1 DF, UNK
     Route: 042
     Dates: start: 20110908, end: 20110909
  6. METHADONE HYDROCHLORIDE [Suspect]
     Dosage: 40 mg, tid
     Route: 048
     Dates: start: 2006, end: 20111015
  7. TIENAM 500MG/500MG, POUDRE POUR PERFUSION [Concomitant]
     Dosage: UNK
     Dates: start: 20110916
  8. TAVANIC [Concomitant]
     Dosage: UNK
     Dates: start: 20110916

REACTIONS (1)
  - Multi-organ failure [Fatal]
